FAERS Safety Report 17336865 (Version 3)
Quarter: 2020Q1

REPORT INFORMATION
  Report Type: Spontaneous
  Country: TR (occurrence: TR)
  Receive Date: 20200129
  Receipt Date: 20200316
  Transmission Date: 20200409
  Serious: Yes (Other)
  Sender: FDA-Public Use
  Company Number: NVSC2020TR019118

PATIENT
  Age: 5 Month
  Sex: Male
  Weight: 7.9 kg

DRUGS (1)
  1. VALPROATE SODIUM. [Suspect]
     Active Substance: VALPROATE SODIUM
     Indication: FOETAL EXPOSURE DURING PREGNANCY
     Dosage: UNK (MATERNAL DOSE: 1000 MG/DAY)
     Route: 064

REACTIONS (11)
  - Hypertelorism of orbit [Unknown]
  - Low set ears [Unknown]
  - Retrognathia [Unknown]
  - Pulmonary artery stenosis [Unknown]
  - Patent ductus arteriosus [Unknown]
  - Syndactyly [Unknown]
  - Prominent epicanthal folds [Unknown]
  - Foetal anticonvulsant syndrome [Unknown]
  - Foetal exposure during pregnancy [Unknown]
  - Nasal disorder [Unknown]
  - Nystagmus [Unknown]
